FAERS Safety Report 7250358-3 (Version None)
Quarter: 2011Q1

REPORT INFORMATION
  Report Type: 
  Country: None (occurrence: None)
  Receive Date: 20110121
  Receipt Date: 20110121
  Transmission Date: 20110831
  Serious: Yes (Hospitalization)
  Sender: FDA-Public Use
  Company Number: None

PATIENT
  Age: 51 Year
  Sex: Female
  Weight: 73.5 kg

DRUGS (1)
  1. NALTREXONE HYDROCHLORIDE [Suspect]
     Indication: ALCOHOLISM
     Dosage: 380 MG ONCE IM
     Route: 030
     Dates: start: 20091102, end: 20091102

REACTIONS (5)
  - IMPAIRED HEALING [None]
  - SCAB [None]
  - SCRATCH [None]
  - INJECTION SITE HAEMATOMA [None]
  - SKIN NECROSIS [None]
